FAERS Safety Report 9795432 (Version 1)
Quarter: 2014Q1

REPORT INFORMATION
  Report Type: Spontaneous
  Country: FR (occurrence: FR)
  Receive Date: 20140103
  Receipt Date: 20140103
  Transmission Date: 20141002
  Serious: Yes (Hospitalization)
  Sender: FDA-Public Use
  Company Number: FR-JNJFOC-20140100165

PATIENT
  Age: 45 Year
  Sex: Male

DRUGS (7)
  1. XARELTO [Suspect]
     Indication: EMBOLISM VENOUS
     Route: 048
     Dates: start: 201306, end: 20131217
  2. XARELTO [Suspect]
     Indication: DEEP VEIN THROMBOSIS
     Route: 048
     Dates: start: 201306, end: 20131217
  3. XARELTO [Suspect]
     Indication: PULMONARY EMBOLISM
     Route: 048
     Dates: start: 201306, end: 20131217
  4. KARDEGIC [Concomitant]
     Route: 065
  5. INEXIUM [Concomitant]
     Route: 065
  6. AMLODIPINE [Concomitant]
     Route: 065
  7. DOLIPRANE [Concomitant]
     Route: 065

REACTIONS (1)
  - Pulmonary embolism [Not Recovered/Not Resolved]
